FAERS Safety Report 25724244 (Version 1)
Quarter: 2025Q3

REPORT INFORMATION
  Report Type: Spontaneous
  Country: EU (occurrence: EU)
  Receive Date: 20250826
  Receipt Date: 20250826
  Transmission Date: 20251021
  Serious: Yes (Hospitalization)
  Sender: ROCHE
  Company Number: EU-ROCHE-10000370813

PATIENT

DRUGS (5)
  1. RITUXIMAB [Suspect]
     Active Substance: RITUXIMAB
     Indication: Product used for unknown indication
     Route: 065
  2. TOCILIZUMAB [Suspect]
     Active Substance: TOCILIZUMAB
     Indication: Product used for unknown indication
     Route: 065
  3. TOLODODEKIN ALFA [Suspect]
     Active Substance: TOLODODEKIN ALFA
     Indication: Product used for unknown indication
     Route: 065
  4. PEMBROLIZUMAB [Suspect]
     Active Substance: PEMBROLIZUMAB
     Indication: Product used for unknown indication
     Route: 065
  5. BRENTUXIMAB [Suspect]
     Active Substance: BRENTUXIMAB
     Indication: Product used for unknown indication
     Route: 065

REACTIONS (5)
  - Rash maculo-papular [Unknown]
  - Hyperthermia [Unknown]
  - Chills [Unknown]
  - Toxic epidermal necrolysis [Unknown]
  - Hypersensitivity [Unknown]
